FAERS Safety Report 6037892-9 (Version None)
Quarter: 2009Q1

REPORT INFORMATION
  Report Type: 
  Country: None (occurrence: None)
  Receive Date: 20090115
  Receipt Date: 20090105
  Transmission Date: 20090719
  Serious: Yes (Death, Other)
  Sender: FDA-Public Use
  Company Number: NO-BRISTOL-MYERS SQUIBB COMPANY-14403224

PATIENT
  Age: 51 Year
  Sex: Male

DRUGS (4)
  1. ORENCIA [Suspect]
     Indication: RHEUMATOID ARTHRITIS
     Dates: start: 20071129, end: 20081006
  2. METHOTREXATE [Suspect]
  3. VOLTAREN [Suspect]
  4. FOLIC ACID [Suspect]

REACTIONS (3)
  - FALL [None]
  - MULTIPLE FRACTURES [None]
  - SUBARACHNOID HAEMORRHAGE [None]
